FAERS Safety Report 15500775 (Version 1)
Quarter: 2018Q4

REPORT INFORMATION
  Report Type: Report from Study
  Country: JP (occurrence: JP)
  Receive Date: 20181015
  Receipt Date: 20181015
  Transmission Date: 20190205
  Serious: Yes (Hospitalization)
  Sender: FDA-Public Use
  Company Number: JP-PFIZER INC-2018411149

PATIENT
  Age: 68 Year
  Sex: Male
  Weight: 59.3 kg

DRUGS (19)
  1. LETERMOVIR [Concomitant]
     Active Substance: LETERMOVIR
     Dosage: ORAL DRUG UNSPECIFIED FORM
     Route: 048
     Dates: start: 20180815
  2. BAKTAR [Concomitant]
     Active Substance: SULFAMETHOXAZOLE\TRIMETHOPRIM
     Dosage: UNK
     Dates: start: 20180802
  3. BUTYRIC ACID BACTERIA [Concomitant]
     Dosage: UNK
     Dates: start: 20180802
  4. ACICLOVIR [Concomitant]
     Active Substance: ACYCLOVIR
     Dosage: ORAL DRUG UNSPECIFIED FORM
     Route: 048
     Dates: start: 20180802
  5. MAGNESIUM SULFATE DIHYDRATE [Concomitant]
     Dosage: UNK
     Dates: start: 20180907
  6. LEVOFLOXACIN. [Concomitant]
     Active Substance: LEVOFLOXACIN
     Dosage: ORAL DRUG UNSPECIFIED FORM
     Route: 048
     Dates: start: 20180802
  7. SILODOSIN. [Concomitant]
     Active Substance: SILODOSIN
     Dosage: ORAL DRUG UNSPECIFIED FORM
     Route: 048
  8. CASPOFUNGIN ACETATE. [Concomitant]
     Active Substance: CASPOFUNGIN ACETATE
     Dosage: UNK
     Dates: start: 20180824
  9. PITAVASTATIN CALCIUM MOCHIDA [Concomitant]
     Dosage: ORAL DRUG UNSPECIFIED FORM
     Route: 048
  10. INSULIN LISPRO [Concomitant]
     Active Substance: INSULIN LISPRO
     Dosage: UNK
     Dates: start: 20180902
  11. METHYLPREDNISOLONE SODIUM SUCCINATE. [Suspect]
     Active Substance: METHYLPREDNISOLONE SODIUM SUCCINATE
     Dosage: 96 MG, BID
     Route: 042
     Dates: start: 20180908
  12. METHYLPREDNISOLONE SODIUM SUCCINATE. [Suspect]
     Active Substance: METHYLPREDNISOLONE SODIUM SUCCINATE
     Dosage: 2 MG/KG, 200 MG QD
     Route: 042
     Dates: start: 20180901
  13. REBAMIPIDE [Concomitant]
     Active Substance: REBAMIPIDE
     Dosage: ORAL DRUG UNSPECIFIED FORM
     Route: 048
     Dates: start: 20180719
  14. INCB039110 [Suspect]
     Active Substance: ITACITINIB
     Indication: ACUTE GRAFT VERSUS HOST DISEASE
     Dosage: 200 MG, QD
     Route: 048
     Dates: start: 20180901
  15. MYCOPHENOLATE MOFETIL. [Concomitant]
     Active Substance: MYCOPHENOLATE MOFETIL
     Dosage: ORAL DRUG UNSPECIFIED FORM
     Route: 048
     Dates: start: 20180815
  16. ESOMEPRAZOLE. [Concomitant]
     Active Substance: ESOMEPRAZOLE MAGNESIUM
     Dosage: ORAL DRUG UNSPECIFIED FORM
     Route: 048
     Dates: start: 20180901
  17. URSODEOXYCHOLIC ACID [Concomitant]
     Active Substance: URSODIOL
     Dosage: ORAL DRUG UNSPECIFIED FORM
     Route: 048
     Dates: start: 20180802
  18. TACROLIMUS ACCORD [Concomitant]
     Active Substance: TACROLIMUS
     Dosage: UNK
     Dates: start: 20180908
  19. METHYLPREDNISOLONE SODIUM SUCCINATE. [Suspect]
     Active Substance: METHYLPREDNISOLONE SODIUM SUCCINATE
     Indication: GRAFT VERSUS HOST DISEASE
     Dosage: 1 MG/KG, 96 MG BID
     Route: 042
     Dates: start: 20180831, end: 20180831

REACTIONS (1)
  - Seizure [Recovering/Resolving]

NARRATIVE: CASE EVENT DATE: 20180910
